FAERS Safety Report 5570548-5 (Version None)
Quarter: 2007Q4

REPORT INFORMATION
  Report Type: 
  Country: None (occurrence: None)
  Receive Date: 20071221
  Receipt Date: 20071211
  Transmission Date: 20080405
  Serious: Yes (Hospitalization)
  Sender: FDA-Public Use
  Company Number: SE-NOVOPROD-269166

PATIENT
  Age: 57 Year
  Sex: Female
  Weight: 55 kg

DRUGS (4)
  1. NORDITROPIN NORDIFLEX [Suspect]
     Indication: GROWTH HORMONE DEFICIENCY
     Dates: start: 20070420
  2. LEVOTHYROXINE SODIUM [Concomitant]
     Indication: THYROID DISORDER
     Dosage: 50 UG, QD
     Dates: start: 20070125
  3. OPTINATE [Concomitant]
     Indication: OSTEOPOROSIS
     Dates: start: 20061215
  4. KALCIPOS-D [Concomitant]
     Indication: OSTEOPOROSIS
     Dates: start: 20040613

REACTIONS (2)
  - ADRENAL INSUFFICIENCY [None]
  - RESPIRATORY TRACT INFECTION [None]
